FAERS Safety Report 4519172-3 (Version None)
Quarter: 2004Q4

REPORT INFORMATION
  Report Type: 
  Country: None (occurrence: None)
  Receive Date: 20041206
  Receipt Date: 20041126
  Transmission Date: 20050328
  Serious: Yes (Other)
  Sender: FDA-Public Use
  Company Number: SE-ROCHE-387317

PATIENT
  Age: 13 Year
  Sex: Male

DRUGS (5)
  1. ROACCUTAN [Suspect]
     Indication: ACNE
     Dosage: STRENGTH STATED AS 10MG
     Route: 048
     Dates: start: 20040115, end: 20040316
  2. ROACCUTAN [Suspect]
     Dosage: STRENGTH STATED AS 20MG
     Route: 048
     Dates: start: 20040115, end: 20040316
  3. ROACCUTAN [Suspect]
     Dosage: STRENGTH STATED AS 20MG
     Route: 048
     Dates: start: 20040422, end: 20040620
  4. ROACCUTAN [Suspect]
     Dosage: STRENGTH STATED AS 20MG
     Route: 048
     Dates: start: 20040621
  5. PREDNISOLONE [Concomitant]
     Indication: ACNE
     Route: 048
     Dates: start: 20040115

REACTIONS (2)
  - PYOGENIC GRANULOMA [None]
  - TREMOR [None]
